FAERS Safety Report 14528370 (Version 2)
Quarter: 2018Q1

REPORT INFORMATION
  Report Type: Spontaneous
  Country: US (occurrence: US)
  Receive Date: 20180214
  Receipt Date: 20180223
  Transmission Date: 20180509
  Serious: Yes (Other)
  Sender: FDA-Public Use
  Company Number: US-STRIDES ARCOLAB LIMITED-2018SP000923

PATIENT

DRUGS (25)
  1. CINACALCET. [Concomitant]
     Active Substance: CINACALCET
     Dosage: 6.9 MG PER DAY (AT 8.0 WEEK)
     Route: 048
  2. CINACALCET. [Concomitant]
     Active Substance: CINACALCET
     Dosage: 3.3 MG PER DAY (FROM 10.5 WEEKS TO 11.5 WEEKS)
     Route: 048
  3. CINACALCET. [Concomitant]
     Active Substance: CINACALCET
     Dosage: 4.8 MG PER DAY (FROM 13.5 WEEKS TO 15.5 WEEKS)
     Route: 048
  4. CHLORTHIAZIDE [Concomitant]
     Active Substance: CHLOROTHIAZIDE
     Dosage: UNK (DOSE DOUBLED)
     Route: 065
  5. CALCITRIOL. [Suspect]
     Active Substance: CALCITRIOL
     Dosage: 0.30 MCG PER DAY (FROM -5.0 WEEK TO -2.6 WEEK), UNK
     Route: 065
  6. CALCIUM [Suspect]
     Active Substance: CALCIUM
     Dosage: 780 MG PER DAY (FROM 6.6 WEEKS TO 13.5 WEEKS), UNK
     Route: 065
  7. CINACALCET. [Concomitant]
     Active Substance: CINACALCET
     Dosage: 6.6 MG PER DAY (AT 9.0 WEEKS)
     Route: 048
  8. CHLORTHIAZIDE [Concomitant]
     Active Substance: CHLOROTHIAZIDE
     Indication: BRONCHOPULMONARY DYSPLASIA
     Dosage: 22.5 MG/KG/DAY
     Route: 065
  9. CALCIUM [Suspect]
     Active Substance: CALCIUM
     Dosage: 280 MG PER DAY (FROM -1.4 WEEK TO 1.6 WEEK), UNK
     Route: 065
  10. CINACALCET. [Concomitant]
     Active Substance: CINACALCET
     Dosage: 6.0 MG PER DAY (AT 2.0 WEEK)
     Route: 048
  11. CINACALCET. [Concomitant]
     Active Substance: CINACALCET
     Dosage: 7.2 MG PER DAY (AT 6.6 WEEKS)
     Route: 048
  12. CALCITRIOL. [Suspect]
     Active Substance: CALCITRIOL
     Indication: HYPERPARATHYROIDISM SECONDARY
     Dosage: 0.15 MCG PER DAY (AT -6.1 WEEK), UNK
     Route: 065
  13. CALCITRIOL. [Suspect]
     Active Substance: CALCITRIOL
     Dosage: 0.15 MCG/DAY (FROM -1.4 WEEK TO 11.5 WEEK)
     Route: 065
  14. CINACALCET. [Concomitant]
     Active Substance: CINACALCET
     Dosage: 5.4 MG PER DAY (AT 12.5 WEEKS)
     Route: 048
  15. CINACALCET. [Concomitant]
     Active Substance: CINACALCET
     Dosage: 6.9 MG PER DAY (AT 0.6 WEEK)
     Route: 048
  16. FUROSEMIDE. [Concomitant]
     Active Substance: FUROSEMIDE
     Indication: BRONCHOPULMONARY DYSPLASIA
     Dosage: 3 MG/KG/DAY
     Route: 065
  17. CALCIUM [Suspect]
     Active Substance: CALCIUM
     Indication: HYPERPARATHYROIDISM SECONDARY
     Dosage: 560 MG PER DAY (FROM -7.0 WEEK TO -2.6 WEEK), UNK
     Route: 065
  18. CINACALCET. [Concomitant]
     Active Substance: CINACALCET
     Indication: HYPERPARATHYROIDISM SECONDARY
     Dosage: 3 MG PER DAY (0.4 MG/KG/DAY)
     Route: 048
  19. CINACALCET. [Concomitant]
     Active Substance: CINACALCET
     Dosage: 7.8 MG PER DAY(AT 1.0 WEEK)
     Route: 048
  20. CINACALCET. [Concomitant]
     Active Substance: CINACALCET
     Dosage: 3.5 MG PER DAY (AT 4.6 WEEKS)
     Route: 048
  21. CALCIUM [Suspect]
     Active Substance: CALCIUM
     Dosage: 600 MG PER DAY (FROM 2.0 WEEKS TO 4.6 WEEKS), UNK
     Route: 065
  22. CALCIUM [Suspect]
     Active Substance: CALCIUM
     Dosage: 760 MG PER DAY (AT 14.5 WEEKS), UNK
     Route: 065
  23. CALCIUM [Suspect]
     Active Substance: CALCIUM
     Dosage: 240 MG PER DAY (AT 15.5 WEEKS), UNK
     Route: 065
  24. CINACALCET. [Concomitant]
     Active Substance: CINACALCET
     Dosage: 6.0 MG PER DAY (AT 1.6 WEEK)
     Route: 048
  25. CINACALCET. [Concomitant]
     Active Substance: CINACALCET
     Dosage: 2.4 MG PER DAY (AT 16.5 WEEKS)
     Route: 048

REACTIONS (1)
  - Therapy partial responder [Unknown]
